FAERS Safety Report 23088283 (Version 1)
Quarter: 2023Q4

REPORT INFORMATION
  Report Type: Other
  Country: CA (occurrence: CA)
  Receive Date: 20231020
  Receipt Date: 20231020
  Transmission Date: 20240110
  Serious: Yes (Other)
  Sender: FDA-Public Use
  Company Number: CA-APOTEX-2023AP015236

PATIENT
  Age: 62 Year
  Sex: Male

DRUGS (16)
  1. LOSARTAN [Suspect]
     Active Substance: LOSARTAN
     Indication: Product used for unknown indication
     Dosage: 100 MILLIGRAM, QD
     Route: 065
  2. CANDESARTAN [Suspect]
     Active Substance: CANDESARTAN
     Indication: Product used for unknown indication
     Dosage: 16 MILLIGRAM, QD
     Route: 048
  3. CANDESARTAN [Suspect]
     Active Substance: CANDESARTAN
     Dosage: 16 MILLIGRAM, QD
     Route: 065
  4. CANDESARTAN [Suspect]
     Active Substance: CANDESARTAN
     Dosage: UNK, QD
     Route: 065
  5. CANDESARTAN [Suspect]
     Active Substance: CANDESARTAN
     Dosage: UNK
     Route: 065
  6. ATORVASTATIN [Suspect]
     Active Substance: ATORVASTATIN
     Indication: Product used for unknown indication
     Dosage: 80 MILLIGRAM, QD
     Route: 065
  7. AMLODIPINE [Suspect]
     Active Substance: AMLODIPINE BESYLATE
     Indication: Product used for unknown indication
     Dosage: 5 MILLIGRAM, QD
     Route: 048
  8. SANDOSTATIN [Suspect]
     Active Substance: OCTREOTIDE ACETATE
     Indication: Acromegaly
     Dosage: 20 MILLIGRAM, Q.M.T.
     Route: 030
  9. SANDOSTATIN [Suspect]
     Active Substance: OCTREOTIDE ACETATE
     Dosage: 20 MILLIGRAM, Q.M.T.
     Route: 058
  10. SOMAVERT [Suspect]
     Active Substance: PEGVISOMANT
     Indication: Product used for unknown indication
     Dosage: 20 MILLIGRAM, QD
     Route: 065
  11. SOMAVERT [Suspect]
     Active Substance: PEGVISOMANT
     Dosage: 10 MILLIGRAM, QD
     Route: 058
  12. PEGVISOMANT [Concomitant]
     Active Substance: PEGVISOMANT
     Indication: Product used for unknown indication
     Dosage: 10 MILLIGRAM, QD
     Route: 058
  13. CLOPIDOGREL BISULFATE [Concomitant]
     Active Substance: CLOPIDOGREL BISULFATE
     Indication: Product used for unknown indication
     Dosage: 75 MILLIGRAM
     Route: 048
  14. ATACAND [Concomitant]
     Active Substance: CANDESARTAN CILEXETIL
     Indication: Product used for unknown indication
     Dosage: 16 MILLIGRAM, QD
     Route: 048
  15. ASPIRIN [Concomitant]
     Active Substance: ASPIRIN
     Indication: Product used for unknown indication
     Dosage: 80 MILLIGRAM, QD
     Route: 048
  16. ASPIRIN [Concomitant]
     Active Substance: ASPIRIN
     Dosage: 50 MILLIGRAM
     Route: 048

REACTIONS (22)
  - Insulin-like growth factor increased [Not Recovered/Not Resolved]
  - Arterial occlusive disease [Not Recovered/Not Resolved]
  - Blood cholesterol abnormal [Not Recovered/Not Resolved]
  - Blood growth hormone increased [Not Recovered/Not Resolved]
  - Blood pressure increased [Not Recovered/Not Resolved]
  - Cellulitis [Not Recovered/Not Resolved]
  - Chest discomfort [Not Recovered/Not Resolved]
  - Vital functions abnormal [Not Recovered/Not Resolved]
  - Peripheral swelling [Not Recovered/Not Resolved]
  - Tendonitis [Not Recovered/Not Resolved]
  - Gait disturbance [Not Recovered/Not Resolved]
  - Injection site oedema [Not Recovered/Not Resolved]
  - Injection site pain [Not Recovered/Not Resolved]
  - Limb injury [Not Recovered/Not Resolved]
  - Polyp [Not Recovered/Not Resolved]
  - Weight decreased [Not Recovered/Not Resolved]
  - Wound infection [Not Recovered/Not Resolved]
  - Pain [Not Recovered/Not Resolved]
  - Fall [Not Recovered/Not Resolved]
  - Heart rate decreased [Not Recovered/Not Resolved]
  - Bradycardia [Not Recovered/Not Resolved]
  - Incorrect route of product administration [Not Recovered/Not Resolved]
